FAERS Safety Report 13411985 (Version 2)
Quarter: 2018Q1

REPORT INFORMATION
  Report Type: Spontaneous
  Country: US (occurrence: US)
  Receive Date: 20170406
  Receipt Date: 20180119
  Transmission Date: 20180508
  Serious: No
  Sender: FDA-Public Use
  Company Number: US-JNJFOC-20170316490

PATIENT
  Sex: Male

DRUGS (7)
  1. RISPERIDONE. [Suspect]
     Active Substance: RISPERIDONE
     Indication: AGGRESSION
     Dosage: VARIABLE DOSES OF 0.5 MG 03 MG AND 04 MG
     Route: 048
     Dates: start: 20130822, end: 20140320
  2. RISPERIDONE M-TAB [Suspect]
     Active Substance: RISPERIDONE
     Indication: AGGRESSION
     Dosage: VARIABLE DOSES OF 01 MG, 03 MG, AND 04 MG
     Route: 048
     Dates: start: 20120717, end: 20130723
  3. RISPERDAL M-TAB [Suspect]
     Active Substance: RISPERIDONE
     Indication: AGGRESSION
     Route: 048
     Dates: start: 20121219, end: 20130214
  4. RISPERDAL M-TAB [Suspect]
     Active Substance: RISPERIDONE
     Indication: DRUG THERAPY
     Route: 048
     Dates: start: 20121219, end: 20130214
  5. RISPERIDONE. [Suspect]
     Active Substance: RISPERIDONE
     Indication: DRUG THERAPY
     Dosage: VARIABLE DOSES OF 0.5 MG 03 MG AND 04 MG
     Route: 048
     Dates: start: 20130822, end: 20140320
  6. RISPERDAL [Suspect]
     Active Substance: RISPERIDONE
     Indication: PRODUCT USED FOR UNKNOWN INDICATION
     Route: 048
     Dates: start: 20120717, end: 20140320
  7. RISPERIDONE M-TAB [Suspect]
     Active Substance: RISPERIDONE
     Indication: DRUG THERAPY
     Dosage: VARIABLE DOSES OF 01 MG, 03 MG, AND 04 MG
     Route: 048
     Dates: start: 20120717, end: 20130723

REACTIONS (2)
  - Gynaecomastia [Unknown]
  - Emotional disorder [Unknown]
